FAERS Safety Report 10258518 (Version 1)
Quarter: 2014Q2

REPORT INFORMATION
  Report Type: Report from Study
  Country: US (occurrence: US)
  Receive Date: 20140625
  Receipt Date: 20140625
  Transmission Date: 20141212
  Serious: Yes (Hospitalization)
  Sender: FDA-Public Use
  Company Number: US-SA-2014SA080932

PATIENT
  Age: 77 Year
  Sex: Female
  Weight: 58 kg

DRUGS (5)
  1. ELOXATIN [Suspect]
     Indication: ADENOCARCINOMA OF COLON
     Dosage: OVER 2 HOURS ON DAY 1
     Route: 042
     Dates: start: 20130531, end: 20130626
  2. PLACEBO [Suspect]
     Indication: ADENOCARCINOMA OF COLON
     Route: 048
     Dates: start: 20130612, end: 20130617
  3. FLUOROURACIL [Suspect]
     Indication: ADENOCARCINOMA OF COLON
     Dosage: IVP ON DAY 1
     Route: 042
     Dates: start: 20130531, end: 20130628
  4. FLUOROURACIL [Suspect]
     Indication: ADENOCARCINOMA OF COLON
     Dosage: OVER 46-48 HOURS ON DAY 1
     Route: 042
     Dates: start: 20130531, end: 20130628
  5. LEUCOVORIN CALCIUM [Concomitant]
     Dates: start: 20130531, end: 20130626

REACTIONS (6)
  - Myocardial infarction [Recovering/Resolving]
  - Small intestinal obstruction [Recovered/Resolved]
  - Diarrhoea [Recovering/Resolving]
  - Nausea [Recovering/Resolving]
  - Vomiting [Recovering/Resolving]
  - Anaemia [Unknown]
